FAERS Safety Report 22170198 (Version 2)
Quarter: 2023Q2

REPORT INFORMATION
  Report Type: Spontaneous
  Country: DE (occurrence: DE)
  Receive Date: 20230404
  Receipt Date: 20230415
  Transmission Date: 20230722
  Serious: Yes (Hospitalization, Other)
  Sender: FDA-Public Use
  Company Number: DE-009507513-2303DEU005896

PATIENT
  Age: 61 Year
  Sex: Male
  Weight: 75 kg

DRUGS (4)
  1. CARBOPLATIN [Suspect]
     Active Substance: CARBOPLATIN
     Indication: Non-small cell lung cancer
     Dosage: 415 MG (415 MILLIGRAM)
     Route: 065
     Dates: start: 20230118, end: 20230216
  2. PACLITAXEL [Suspect]
     Active Substance: PACLITAXEL
     Indication: Non-small cell lung cancer
     Dosage: 263 MG (263 MILLIGRAM)
     Route: 065
     Dates: start: 20230120, end: 20230216
  3. PEMBROLIZUMAB [Suspect]
     Active Substance: PEMBROLIZUMAB
     Indication: Non-small cell lung cancer
     Dosage: 200 MILLIGRAM
     Route: 065
     Dates: start: 20230216, end: 20230216
  4. DEXAMETHASONE [Concomitant]
     Active Substance: DEXAMETHASONE
     Indication: Product used for unknown indication
     Dosage: 20 MILLIGRAM
     Route: 065
     Dates: start: 20230216, end: 202302

REACTIONS (5)
  - Immune-mediated hepatitis [Recovering/Resolving]
  - Haematochezia [Recovering/Resolving]
  - Hepatic enzyme increased [Recovering/Resolving]
  - Colitis [Recovering/Resolving]
  - Immunosuppression [Recovering/Resolving]

NARRATIVE: CASE EVENT DATE: 20230313
